FAERS Safety Report 26158532 (Version 1)
Quarter: 2025Q4

REPORT INFORMATION
  Report Type: Spontaneous
  Country: US (occurrence: None)
  Receive Date: 20251215
  Receipt Date: 20251215
  Transmission Date: 20260118
  Serious: No
  Sender: FDA-CTU
  Company Number: None

PATIENT
  Sex: Male

DRUGS (5)
  1. JAKAFI [Suspect]
     Active Substance: RUXOLITINIB
     Indication: Myeloproliferative neoplasm
     Dosage: FREQUENCY : TWICE A DAY;
     Route: 048
     Dates: start: 20250729
  2. HYDROXYUREA [Concomitant]
     Active Substance: HYDROXYUREA
  3. TIZANIDINE [Concomitant]
     Active Substance: TIZANIDINE
  4. ALLOPURINOL [Concomitant]
     Active Substance: ALLOPURINOL
  5. DILTIAZEM [Concomitant]
     Active Substance: DILTIAZEM

REACTIONS (1)
  - Back pain [None]
